FAERS Safety Report 20751023 (Version 1)
Quarter: 2022Q2

REPORT INFORMATION
  Report Type: Report from Study
  Country: PR (occurrence: PR)
  Receive Date: 20220426
  Receipt Date: 20220426
  Transmission Date: 20220721
  Serious: Yes (Other)
  Sender: FDA-Public Use
  Company Number: PR-PFIZER INC-202200597746

PATIENT
  Age: 62 Year
  Sex: Female
  Weight: 87.089 kg

DRUGS (8)
  1. LYRICA [Suspect]
     Active Substance: PREGABALIN
     Indication: Fibromyalgia
     Dosage: 300 MG, DAILY
     Route: 048
  2. HUMIRA [Suspect]
     Active Substance: ADALIMUMAB
     Indication: Rheumatoid arthritis
     Dosage: UNK
     Route: 058
  3. TOZINAMERAN [Concomitant]
     Active Substance: TOZINAMERAN
     Indication: COVID-19 immunisation
     Dosage: DOSE 3 (BOOSTER), SINGLE
     Route: 030
     Dates: start: 20210924, end: 20210924
  4. TOZINAMERAN [Concomitant]
     Active Substance: TOZINAMERAN
     Dosage: DOSE 2, SINGLE
     Route: 030
     Dates: start: 20210330, end: 20210330
  5. TOZINAMERAN [Concomitant]
     Active Substance: TOZINAMERAN
     Dosage: DOSE 1, SINGLE
     Route: 030
     Dates: start: 20210309, end: 20210309
  6. SINGULAIR [Concomitant]
     Active Substance: MONTELUKAST SODIUM
     Indication: Asthma
     Dosage: UNK
     Route: 048
  7. CYMBALTA [Concomitant]
     Active Substance: DULOXETINE HYDROCHLORIDE
     Indication: Neuropathy peripheral
     Dosage: 90 MG, DAILY
     Route: 048
  8. ZYRTEC [Concomitant]
     Active Substance: CETIRIZINE HYDROCHLORIDE
     Indication: Asthma
     Dosage: UNK
     Route: 048

REACTIONS (2)
  - Renal injury [Not Recovered/Not Resolved]
  - Blood creatinine increased [Recovered/Resolved]

NARRATIVE: CASE EVENT DATE: 20200101
